FAERS Safety Report 9920111 (Version 1)
Quarter: 2014Q1

REPORT INFORMATION
  Report Type: Spontaneous
  Country: ES (occurrence: DE)
  Receive Date: 20140224
  Receipt Date: 20140224
  Transmission Date: 20141002
  Serious: Yes (Hospitalization)
  Sender: FDA-Public Use
  Company Number: DE-FRI-1000054536

PATIENT
  Age: 74 Year
  Sex: Male

DRUGS (1)
  1. ACLIDINIUM [Suspect]

REACTIONS (1)
  - Atrial fibrillation [Recovered/Resolved]
